FAERS Safety Report 10993967 (Version 6)
Quarter: 2015Q3

REPORT INFORMATION
  Report Type: Report from Study
  Country: US (occurrence: US)
  Receive Date: 20150407
  Receipt Date: 20150921
  Transmission Date: 20151125
  Serious: Yes (Other)
  Sender: FDA-Public Use
  Company Number: US-SANOFI-AVENTIS-2013SA041166

PATIENT
  Age: 49 Year
  Sex: Female

DRUGS (5)
  1. VITAMIN B12 [Concomitant]
     Active Substance: CYANOCOBALAMIN
  2. LAMOTRIGINE. [Concomitant]
     Active Substance: LAMOTRIGINE
  3. MINERALS NOS/VITAMINS NOS [Concomitant]
  4. TAMOXIFEN [Concomitant]
     Active Substance: TAMOXIFEN
  5. AUBAGIO [Suspect]
     Active Substance: TERIFLUNOMIDE
     Indication: MULTIPLE SCLEROSIS
     Route: 048
     Dates: start: 20130311

REACTIONS (22)
  - Oophorectomy [Unknown]
  - Nasopharyngitis [Unknown]
  - Sensory disturbance [Unknown]
  - Visual impairment [Unknown]
  - Pain in extremity [Recovering/Resolving]
  - Temperature intolerance [Unknown]
  - Dizziness [Unknown]
  - Immunodeficiency [Unknown]
  - Malaise [Unknown]
  - Rash [Not Recovered/Not Resolved]
  - Diarrhoea [Not Recovered/Not Resolved]
  - Paraesthesia [Not Recovered/Not Resolved]
  - Burning sensation [Unknown]
  - Fatigue [Recovering/Resolving]
  - Device related infection [Unknown]
  - Urinary tract infection [Unknown]
  - Seroma [Recovered/Resolved]
  - Muscular weakness [Recovering/Resolving]
  - Unevaluable event [Unknown]
  - Walking aid user [Unknown]
  - Multiple sclerosis relapse [Recovered/Resolved]
  - Head discomfort [Not Recovered/Not Resolved]

NARRATIVE: CASE EVENT DATE: 2013
